FAERS Safety Report 9858307 (Version 3)
Quarter: 2014Q1

REPORT INFORMATION
  Report Type: Spontaneous
  Country: US (occurrence: US)
  Receive Date: 20140131
  Receipt Date: 20140328
  Transmission Date: 20141002
  Serious: Yes (Other)
  Sender: FDA-Public Use
  Company Number: US-BEH-2014040268

PATIENT
  Age: 88 Year
  Sex: Male

DRUGS (3)
  1. PRIVIGEN [Suspect]
     Dosage: ONE DOSE ONLY
     Route: 042
     Dates: start: 20130517, end: 20130517
  2. RITUXAN [Suspect]
     Route: 042
     Dates: start: 20120713
  3. RITUXAN [Suspect]
     Route: 042
     Dates: start: 20131119

REACTIONS (2)
  - Basal cell carcinoma [Recovered/Resolved]
  - Squamous cell carcinoma of skin [Recovered/Resolved]
